FAERS Safety Report 6149161-7 (Version None)
Quarter: 2009Q2

REPORT INFORMATION
  Report Type: 
  Country: None (occurrence: None)
  Receive Date: 20090407
  Receipt Date: 20090316
  Transmission Date: 20091009
  Serious: Yes (Disabling)
  Sender: FDA-Public Use
  Company Number: 2009S1004541

PATIENT
  Age: 74 Year
  Sex: Female

DRUGS (1)
  1. ALENDRONIC ACID (ALENDRONIC ACID) [Suspect]
     Indication: OSTEOPOROSIS
     Dosage: ORAL
     Route: 048

REACTIONS (3)
  - MOUTH ULCERATION [None]
  - NO THERAPEUTIC RESPONSE [None]
  - WRONG TECHNIQUE IN DRUG USAGE PROCESS [None]
